FAERS Safety Report 15587981 (Version 4)
Quarter: 2019Q1

REPORT INFORMATION
  Report Type: Spontaneous
  Country: US (occurrence: US)
  Receive Date: 20181105
  Receipt Date: 20190128
  Transmission Date: 20190417
  Serious: Yes (Other)
  Sender: FDA-Public Use
  Company Number: US-GLAXOSMITHKLINE-US2018195856

PATIENT
  Age: 42 Year
  Sex: Male
  Weight: 100.68 kg

DRUGS (19)
  1. VELCADE [Concomitant]
     Active Substance: BORTEZOMIB
  2. ZOLEDRONATE [Concomitant]
     Active Substance: ZOLEDRONIC ACID
  3. ALBUTEROL. [Concomitant]
     Active Substance: ALBUTEROL
  4. VENTOLIN HFA [Concomitant]
     Active Substance: ALBUTEROL SULFATE
  5. DEXAMETHASONE. [Concomitant]
     Active Substance: DEXAMETHASONE
  6. LYRICA [Concomitant]
     Active Substance: PREGABALIN
  7. MMF [Concomitant]
     Active Substance: MYCOPHENOLATE MOFETIL
  8. REVLIMID [Concomitant]
     Active Substance: LENALIDOMIDE
  9. ACYCLOVIR. [Concomitant]
     Active Substance: ACYCLOVIR
  10. BENADRYL [Concomitant]
     Active Substance: DIPHENHYDRAMINE HYDROCHLORIDE
  11. ERGOCALCIFEROL. [Concomitant]
     Active Substance: ERGOCALCIFEROL
  12. PREDNISONE. [Concomitant]
     Active Substance: PREDNISONE
  13. PROMETHAZINE [Concomitant]
     Active Substance: PROMETHAZINE\PROMETHAZINE HYDROCHLORIDE
  14. TUSSIONEX PENNKINETIC [Concomitant]
     Active Substance: CHLORPHENIRAMINE\HYDROCODONE
  15. BENLYSTA [Suspect]
     Active Substance: BELIMUMAB
     Indication: SYSTEMIC LUPUS ERYTHEMATOSUS
     Dosage: 10 MG/KG, UNK
     Route: 042
     Dates: start: 20110513, end: 20180817
  16. RESTORIL [Concomitant]
     Active Substance: TEMAZEPAM
  17. DICLOFENAC [Concomitant]
     Active Substance: DICLOFENAC
  18. LORATADINE. [Concomitant]
     Active Substance: LORATADINE
  19. TOPIRAMATE. [Concomitant]
     Active Substance: TOPIRAMATE

REACTIONS (18)
  - Plasma cell myeloma [Unknown]
  - Surgery [Unknown]
  - Musculoskeletal pain [Unknown]
  - Osteoporosis [Unknown]
  - Fatigue [Unknown]
  - Sepsis [Unknown]
  - Diarrhoea [Unknown]
  - Osteolysis [Unknown]
  - Frequent bowel movements [Unknown]
  - Arthralgia [Unknown]
  - Joint range of motion decreased [Unknown]
  - Dizziness [Unknown]
  - Lung disorder [Unknown]
  - Dumping syndrome [Unknown]
  - Intestinal perforation [Unknown]
  - Cough [Unknown]
  - Fibromyalgia [Unknown]
  - Night sweats [Unknown]

NARRATIVE: CASE EVENT DATE: 20130220
